FAERS Safety Report 5398861-5 (Version None)
Quarter: 2007Q3

REPORT INFORMATION
  Report Type: 
  Country: None (occurrence: None)
  Receive Date: 20070727
  Receipt Date: 20070724
  Transmission Date: 20080115
  Serious: Yes (Death, Life-Threatening, Other)
  Sender: FDA-Public Use
  Company Number: PHNU2007DE02629

PATIENT

DRUGS (7)
  1. AREDIA [Suspect]
     Indication: PLASMACYTOMA
     Dosage: 90 MG, UNK
     Route: 042
     Dates: start: 20000301, end: 20020201
  2. ZOMETA [Suspect]
     Indication: MULTIPLE MYELOMA
     Dosage: 4 MG, UNK
     Route: 042
     Dates: start: 20020701, end: 20050901
  3. ASPIRIN [Concomitant]
     Route: 065
  4. CAPTOHEXAL [Concomitant]
     Route: 065
  5. INSULIN [Concomitant]
     Route: 065
  6. XALATAN [Concomitant]
     Route: 065
  7. TRUSOPT [Concomitant]
     Route: 065

REACTIONS (11)
  - ABSCESS DRAINAGE [None]
  - ABSCESS JAW [None]
  - ACTINOMYCOSIS [None]
  - ANTIBIOTIC PROPHYLAXIS [None]
  - BIOPSY SITE UNSPECIFIED ABNORMAL [None]
  - JAW DISORDER [None]
  - ORAL SURGERY [None]
  - OSTEOMYELITIS [None]
  - OSTEONECROSIS [None]
  - PURULENT DISCHARGE [None]
  - SEPSIS [None]
